FAERS Safety Report 4662151-6 (Version None)
Quarter: 2005Q2

REPORT INFORMATION
  Report Type: 
  Country: None (occurrence: None)
  Receive Date: 20050512
  Receipt Date: 20050425
  Transmission Date: 20051028
  Serious: Yes (Other)
  Sender: FDA-Public Use
  Company Number: US_0503114266

PATIENT
  Age: 60 Year
  Sex: Female
  Weight: 127 kg

DRUGS (14)
  1. HUMATROPE [Suspect]
     Indication: GROWTH HORMONE DEFICIENCY
     Dosage: 0.5 MG AT BEDTIME
     Dates: start: 20010101
  2. METFORMIN [Concomitant]
  3. AVANDIA [Concomitant]
  4. K-DUR 10 [Concomitant]
  5. FOSAMAX [Concomitant]
  6. DEMADEX [Concomitant]
  7. ACETYLSALICYLIC ACID SRT [Concomitant]
  8. CARDIZEM - SLOW RELEASE ^FERROSAN^ (DILTIAZEM HYDROCHLORIDE) [Concomitant]
  9. ENALAPRIL MALEATE [Concomitant]
  10. TRIAVIL [Concomitant]
  11. LIPITOR [Concomitant]
  12. CELEBREX [Concomitant]
  13. COUMADIN [Concomitant]
  14. LEVOXYL [Concomitant]

REACTIONS (3)
  - LOWER LIMB FRACTURE [None]
  - OSTEOPOROSIS [None]
  - PHARMACEUTICAL PRODUCT COMPLAINT [None]
